FAERS Safety Report 20689252 (Version 3)
Quarter: 2022Q2

REPORT INFORMATION
  Report Type: Spontaneous
  Country: JP (occurrence: JP)
  Receive Date: 20220408
  Receipt Date: 20220623
  Transmission Date: 20220721
  Serious: No
  Sender: FDA-Public Use
  Company Number: JP-GLAXOSMITHKLINE-JP2022JPN061103

PATIENT

DRUGS (8)
  1. SOTROVIMAB [Suspect]
     Active Substance: SOTROVIMAB
     Indication: COVID-19
     Dosage: 500 MG/DAY
     Route: 042
     Dates: start: 20220404, end: 20220404
  2. CLOTRIMAZOLE [Suspect]
     Active Substance: CLOTRIMAZOLE
     Indication: Candida infection
     Dosage: TOPICAL
     Dates: start: 20211204
  3. UFENAMATE [Suspect]
     Active Substance: UFENAMATE
     Indication: Eczema
     Dosage: TOPICAL
     Dates: start: 20220214
  4. BETAMETHASONE DIPROPIONATE [Suspect]
     Active Substance: BETAMETHASONE DIPROPIONATE
     Indication: Eczema
     Dosage: TOPICAL
     Dates: start: 20220214
  5. RINDERON VG [Suspect]
     Active Substance: BETAMETHASONE VALERATE\GENTAMICIN SULFATE
     Indication: Eczema
     Dosage: TOPICAL
     Dates: start: 20220314
  6. PETROLATUM [Suspect]
     Active Substance: PETROLATUM
     Indication: Eczema
     Dosage: TOPICAL
     Dates: start: 20220314
  7. HEPARIN [Suspect]
     Active Substance: HEPARIN SODIUM
     Indication: Eczema asteatotic
     Dosage: TOPICAL
     Dates: start: 20220314
  8. ZINC OXIDE [Suspect]
     Active Substance: ZINC OXIDE
     Indication: Eczema
     Dosage: TOPICAL
     Dates: start: 20220314

REACTIONS (2)
  - Caesarean section [Unknown]
  - Exposure during pregnancy [Unknown]

NARRATIVE: CASE EVENT DATE: 20220412
